FAERS Safety Report 7391004-8 (Version None)
Quarter: 2011Q2

REPORT INFORMATION
  Report Type: 
  Country: None (occurrence: None)
  Receive Date: 20110404
  Receipt Date: 20110324
  Transmission Date: 20111010
  Serious: Yes (Life-Threatening, Other)
  Sender: FDA-Public Use
  Company Number: US-RB-021537-11

PATIENT
  Sex: Female
  Weight: 81 kg

DRUGS (2)
  1. MUCINEX D [Suspect]
     Dosage: PATIENT STARTED DOSING ON 12-FEB-2011
     Route: 048
  2. DIABETES MEDICATION [Concomitant]

REACTIONS (13)
  - ARRHYTHMIA [None]
  - FEELING ABNORMAL [None]
  - FATIGUE [None]
  - BACK PAIN [None]
  - RENAL DISORDER [None]
  - SYNCOPE [None]
  - HEART RATE INCREASED [None]
  - DYSPNOEA [None]
  - MOBILITY DECREASED [None]
  - INSOMNIA [None]
  - ATRIAL FIBRILLATION [None]
  - PAIN [None]
  - TINNITUS [None]
